FAERS Safety Report 17874424 (Version 1)
Quarter: 2020Q2

REPORT INFORMATION
  Report Type: Spontaneous
  Country: US (occurrence: US)
  Receive Date: 20200609
  Receipt Date: 20200609
  Transmission Date: 20200714
  Serious: Yes (Other)
  Sender: FDA-Public Use
  Company Number: US-PFIZER INC-2020223592

PATIENT
  Age: 67 Year

DRUGS (1)
  1. FRAGMIN [Suspect]
     Active Substance: DALTEPARIN SODIUM
     Dosage: UNK (INJECTABLE 18,000 UNITS)

REACTIONS (3)
  - Coronary artery thrombosis [Unknown]
  - Thrombosis [Unknown]
  - Pulmonary thrombosis [Unknown]
